FAERS Safety Report 8821026 (Version 1)
Quarter: 2012Q4

REPORT INFORMATION
  Report Type: 
  Country: US (occurrence: US)
  Receive Date: 20121002
  Receipt Date: 20121002
  Transmission Date: 20130627
  Serious: Yes (Other)
  Sender: FDA-Public Use
  Company Number: US-WATSON-2012-16821

PATIENT
  Age: 63 Year
  Sex: Male

DRUGS (4)
  1. CARBOPLATIN [Suspect]
     Indication: MALIGNANT MELANOMA
     Dosage: UNK
     Route: 065
  2. CISPLATIN [Suspect]
     Indication: MALIGNANT MELANOMA
     Dosage: 25 mg/m2, daily
     Route: 042
  3. VINBLASTINE [Concomitant]
     Indication: MALIGNANT MELANOMA
     Dosage: UNK
     Route: 042
  4. PACLITAXEL [Concomitant]
     Indication: MALIGNANT MELANOMA
     Dosage: UNK
     Route: 065

REACTIONS (4)
  - Angina unstable [Recovered/Resolved]
  - Cardiotoxicity [Recovered/Resolved]
  - Myocardial infarction [None]
  - Ischaemia [Recovered/Resolved]
